FAERS Safety Report 15290813 (Version 1)
Quarter: 2018Q3

REPORT INFORMATION
  Report Type: Spontaneous
  Country: GB (occurrence: GB)
  Receive Date: 20180817
  Receipt Date: 20180817
  Transmission Date: 20181010
  Serious: Yes (Other)
  Sender: FDA-Public Use
  Company Number: GB-PFIZER INC-2018327059

PATIENT
  Age: 42 Year
  Sex: Female

DRUGS (1)
  1. CHAMPIX [Suspect]
     Active Substance: VARENICLINE TARTRATE
     Indication: SMOKING CESSATION THERAPY
     Dosage: 1 MG, UNK
     Route: 048
     Dates: start: 20180513

REACTIONS (4)
  - Premenstrual syndrome [Unknown]
  - Emotional poverty [Unknown]
  - Depressed mood [Not Recovered/Not Resolved]
  - Mood altered [Unknown]
